FAERS Safety Report 7072488-1 (Version None)
Quarter: 2010Q4

REPORT INFORMATION
  Report Type: 
  Country: None (occurrence: None)
  Receive Date: 20101029
  Receipt Date: 20100203
  Transmission Date: 20110411
  Serious: No
  Sender: FDA-Public Use
  Company Number: A0842810A

PATIENT
  Age: 64 Year
  Sex: Female

DRUGS (11)
  1. ADVAIR DISKUS 100/50 [Suspect]
     Indication: CHRONIC OBSTRUCTIVE PULMONARY DISEASE
     Dosage: 1PUFF TWICE PER DAY
     Route: 055
     Dates: start: 20100127
  2. POTASSIUM CHLORIDE [Concomitant]
  3. LOVASTATIN [Concomitant]
  4. BENICAR [Concomitant]
  5. LEVOTHYROXINE SODIUM [Concomitant]
  6. HYDROCHLOROTHIAZIDE [Concomitant]
  7. METFORMIN [Concomitant]
  8. DOXYCYCLINE [Concomitant]
  9. PREDNISONE [Concomitant]
  10. CIPROFLOXACIN [Concomitant]
  11. OXYGEN [Concomitant]

REACTIONS (1)
  - DYSGEUSIA [None]
